FAERS Safety Report 9077892 (Version 1)
Quarter: 2013Q1

REPORT INFORMATION
  Report Type: Report from Study
  Country: US (occurrence: US)
  Receive Date: 20130130
  Receipt Date: 20130130
  Transmission Date: 20140127
  Serious: No
  Sender: FDA-Public Use
  Company Number: US-ABBOTT-12P-163-0976685-00

PATIENT
  Age: 47 Year
  Sex: Female

DRUGS (8)
  1. HUMIRA [Suspect]
     Indication: RHEUMATOID ARTHRITIS
     Dates: start: 20120822
  2. PRAVASTATIN [Concomitant]
     Indication: BLOOD CHOLESTEROL INCREASED
     Dosage: 20MG DAILY
  3. VIIBRYD [Concomitant]
     Indication: ANXIETY
     Dosage: 10MG DAILY
  4. SUCRALSATE [Concomitant]
     Indication: GASTRIC DISORDER
     Dosage: NIGHTLY
  5. VIT D [Concomitant]
     Indication: PRODUCT USED FOR UNKNOWN INDICATION
     Dosage: WEEKLY
  6. VICODIN [Concomitant]
     Indication: PAIN
     Dosage: 5/500 AT NIGHT
  7. XANAX [Concomitant]
     Indication: PRODUCT USED FOR UNKNOWN INDICATION
     Dosage: 1/2 0.25MG TABLET AT NIGHT = 0.125MG
  8. SYNTHROID [Concomitant]
     Indication: THYROID DISORDER
     Dosage: 100MCG DAILY

REACTIONS (8)
  - Drug prescribing error [Not Recovered/Not Resolved]
  - Drug administered at inappropriate site [Not Recovered/Not Resolved]
  - Pruritus [Not Recovered/Not Resolved]
  - Injection site erythema [Unknown]
  - Injection site warmth [Unknown]
  - Rash macular [Unknown]
  - Headache [Unknown]
  - Injection site pruritus [Unknown]
